FAERS Safety Report 6795668-9 (Version None)
Quarter: 2010Q2

REPORT INFORMATION
  Report Type: 
  Country: None (occurrence: None)
  Receive Date: 20100625
  Receipt Date: 20100621
  Transmission Date: 20101027
  Serious: Yes (Death, Life-Threatening, Hospitalization)
  Sender: FDA-Public Use
  Company Number: JP-ELI_LILLY_AND_COMPANY-JP201006005561

PATIENT
  Age: 67 Year
  Sex: Male

DRUGS (1)
  1. ALIMTA [Suspect]
     Dosage: UNK, UNK
     Route: 042

REACTIONS (5)
  - DECREASED APPETITE [None]
  - DIARRHOEA [None]
  - GASTROENTERITIS STAPHYLOCOCCAL [None]
  - PLATELET COUNT DECREASED [None]
  - WHITE BLOOD CELL COUNT DECREASED [None]
